FAERS Safety Report 23326320 (Version 1)
Quarter: 2023Q4

REPORT INFORMATION
  Report Type: Spontaneous
  Country: US (occurrence: US)
  Receive Date: 20231221
  Receipt Date: 20231221
  Transmission Date: 20240110
  Serious: No
  Sender: FDA-Public Use
  Company Number: US-BAXTER-2023BAX038578

PATIENT
  Sex: Male

DRUGS (1)
  1. TISSEEL [Suspect]
     Active Substance: FIBRINOGEN HUMAN\THROMBIN HUMAN
     Indication: Thyroidectomy
     Dosage: UNK
     Route: 065
     Dates: start: 20231201

REACTIONS (1)
  - Seroma [Unknown]

NARRATIVE: CASE EVENT DATE: 20231201
